FAERS Safety Report 18497856 (Version 1)
Quarter: 2020Q4

REPORT INFORMATION
  Report Type: Spontaneous
  Country: US (occurrence: US)
  Receive Date: 20201112
  Receipt Date: 20201112
  Transmission Date: 20210114
  Serious: No
  Sender: FDA-Public Use
  Company Number: US-THERAPEUTICSMD-2020TMD03562

PATIENT
  Age: 50 Year
  Sex: Female
  Weight: 63.95 kg

DRUGS (9)
  1. ELDERBERRY ROOT [Concomitant]
  2. SYNTHROID [Concomitant]
     Active Substance: LEVOTHYROXINE SODIUM
  3. ZINC. [Concomitant]
     Active Substance: ZINC
  4. XANAX [Concomitant]
     Active Substance: ALPRAZOLAM
  5. VITAMIN D [Concomitant]
     Active Substance: VITAMIN D NOS
  6. BIJUVA [Suspect]
     Active Substance: ESTRADIOL\PROGESTERONE
     Indication: HOT FLUSH
     Dosage: 1/100 MG (1 CAPSULES), 1X/DAY AT NIGHT
     Route: 048
     Dates: start: 202006
  7. VITAMIN C [Concomitant]
     Active Substance: ASCORBIC ACID
  8. 4-LIFE TRANSFORM FACTOR PLUS [Concomitant]
     Dosage: UNK
  9. BIJUVA [Suspect]
     Active Substance: ESTRADIOL\PROGESTERONE
     Indication: MENOPAUSE

REACTIONS (2)
  - COVID-19 [Recovered/Resolved]
  - Product dose omission issue [Recovered/Resolved]

NARRATIVE: CASE EVENT DATE: 2020
